FAERS Safety Report 9761128 (Version 1)
Quarter: 2013Q4

REPORT INFORMATION
  Report Type: Spontaneous
  Country: US (occurrence: US)
  Receive Date: 20131216
  Receipt Date: 20131216
  Transmission Date: 20140711
  Serious: No
  Sender: FDA-Public Use
  Company Number: US-BIOGENIDEC-2013BI105876

PATIENT
  Age: 57 Year
  Sex: Female
  Weight: 86 kg

DRUGS (18)
  1. TECFIDERA [Suspect]
     Indication: PRODUCT USED FOR UNKNOWN INDICATION
     Route: 048
     Dates: start: 201309
  2. TECFIDERA [Suspect]
     Indication: PRODUCT USED FOR UNKNOWN INDICATION
     Route: 048
  3. EVOXAC [Concomitant]
  4. ZOLOFT [Concomitant]
  5. WELLBUTRIN [Concomitant]
  6. SEROQUEL [Concomitant]
  7. SYNTHROID [Concomitant]
  8. AMBIEN [Concomitant]
  9. FLONASE [Concomitant]
  10. ESTRADIOL [Concomitant]
  11. PROMETRIUM [Concomitant]
  12. IMITREX [Concomitant]
  13. CLONAZEPAM [Concomitant]
  14. VITAMIN D3 [Concomitant]
  15. MAGNESIUM [Concomitant]
  16. VITAMIN B12 [Concomitant]
  17. VITAMIN C [Concomitant]
  18. NORVASC [Concomitant]

REACTIONS (1)
  - Flushing [Recovered/Resolved]
